FAERS Safety Report 6987392-4 (Version None)
Quarter: 2010Q3

REPORT INFORMATION
  Report Type: 
  Country: None (occurrence: None)
  Receive Date: 20100913
  Receipt Date: 20100826
  Transmission Date: 20110219
  Serious: Yes (Death)
  Sender: FDA-Public Use
  Company Number: 1000016083

PATIENT
  Age: 82 Year
  Sex: Male
  Weight: 50 kg

DRUGS (3)
  1. MEMANTINE HCL [Suspect]
     Indication: DEMENTIA ALZHEIMER'S TYPE
     Dosage: 20 MG (10 MG), ORAL
     Route: 048
     Dates: start: 20091223
  2. SEROQUEL (QUETIAPINE) (QUETIAPINE) [Concomitant]
  3. REMINYL (GALANTAMINE) (GALANTAMINE) [Concomitant]

REACTIONS (3)
  - CARDIO-RESPIRATORY ARREST [None]
  - DEHYDRATION [None]
  - HYPOPHAGIA [None]
